FAERS Safety Report 4964916-X (Version None)
Quarter: 2006Q1

REPORT INFORMATION
  Report Type: 
  Country: None (occurrence: None)
  Receive Date: 20060207
  Receipt Date: 20050523
  Transmission Date: 20060701
  Serious: No
  Sender: FDA-Public Use
  Company Number: 241757

PATIENT
  Age: 66 Year
  Sex: Female
  Weight: 55.8 kg

DRUGS (4)
  1. NOVOLOG [Suspect]
     Indication: DIABETES MELLITUS
     Dosage: SLIDING SCALE, SUBCUTANEOUS
     Route: 058
     Dates: start: 20040907, end: 20050111
  2. NOVOLOG [Suspect]
     Indication: DIABETES MELLITUS
     Dosage: SLIDING SCALE, SUBCUTANEOUS
     Route: 058
     Dates: start: 20040907, end: 20050111
  3. DITROPAN [Concomitant]
  4. WELLBUTRIN [Concomitant]

REACTIONS (1)
  - BLOOD GLUCOSE INCREASED [None]
